FAERS Safety Report 12945730 (Version 1)
Quarter: 2016Q4

REPORT INFORMATION
  Report Type: Spontaneous
  Country: US (occurrence: US)
  Receive Date: 20161115
  Receipt Date: 20161115
  Transmission Date: 20170207
  Serious: No
  Sender: FDA-Public Use
  Company Number: US-009507513-1611USA005617

PATIENT
  Age: 21 Year
  Sex: Female

DRUGS (4)
  1. SINGULAIR [Suspect]
     Active Substance: MONTELUKAST SODIUM
     Indication: ASTHMA
     Dosage: 10 MG, QD
     Route: 048
  2. ZILEUTON. [Suspect]
     Active Substance: ZILEUTON
     Indication: ASTHMA
     Dosage: 1200MG BID (TWICE A DAY)
     Route: 048
  3. FLUTICASONE PROPIONATE (+) SALMETEROL XINAFOATE [Suspect]
     Active Substance: FLUTICASONE PROPIONATE\SALMETEROL XINAFOATE
     Indication: ASTHMA
     Dosage: INHALED FLUTICASONE/SALMETEROL 500/50
     Route: 055
  4. TIOTROPIUM BROMIDE [Suspect]
     Active Substance: TIOTROPIUM BROMIDE
     Indication: ASTHMA
     Dosage: INHALED TIOTROPRIUM 18 MICROGRAM, QD
     Route: 055

REACTIONS (1)
  - Drug ineffective [Unknown]
